FAERS Safety Report 5997027-5 (Version None)
Quarter: 2008Q4

REPORT INFORMATION
  Report Type: 
  Country: None (occurrence: None)
  Receive Date: 20081212
  Receipt Date: 20081031
  Transmission Date: 20090506
  Serious: No
  Sender: FDA-Public Use
  Company Number: US-ABBOTT-08P-163-0485185-00

PATIENT
  Sex: Male
  Weight: 75.818 kg

DRUGS (2)
  1. HUMIRA [Suspect]
     Indication: CROHN'S DISEASE
     Route: 058
     Dates: start: 20080701
  2. FLU VACCINE [Suspect]
     Indication: INFLUENZA IMMUNISATION
     Dates: start: 20081001, end: 20081001

REACTIONS (4)
  - ABDOMINAL DISTENSION [None]
  - ABDOMINAL PAIN UPPER [None]
  - RETCHING [None]
  - WEIGHT DECREASED [None]
